FAERS Safety Report 25882639 (Version 1)
Quarter: 2025Q4

REPORT INFORMATION
  Report Type: Spontaneous
  Country: US (occurrence: US)
  Receive Date: 20251006
  Receipt Date: 20251006
  Transmission Date: 20260118
  Serious: No
  Sender: CHIESI
  Company Number: US-CHIESI-2025CHF04852

PATIENT
  Sex: Female

DRUGS (1)
  1. FILSUVEZ [Suspect]
     Active Substance: BIRCH TRITERPENES
     Indication: Epidermolysis bullosa
     Dosage: UNK, PRN
     Route: 061

REACTIONS (4)
  - Application site pain [Unknown]
  - Application site pain [Unknown]
  - Wound complication [Unknown]
  - Product adhesion issue [Not Recovered/Not Resolved]
